FAERS Safety Report 11724982 (Version 1)
Quarter: 2015Q4

REPORT INFORMATION
  Report Type: Spontaneous
  Country: US (occurrence: US)
  Receive Date: 20151110
  Receipt Date: 20151110
  Transmission Date: 20160304
  Serious: No
  Sender: FDA-Public Use
  Company Number: US-ELI_LILLY_AND_COMPANY-US201109004637

PATIENT
  Age: 76 Year
  Sex: Female

DRUGS (1)
  1. FORTEO [Suspect]
     Active Substance: TERIPARATIDE
     Dosage: 20 UG, QD

REACTIONS (13)
  - Face injury [Unknown]
  - Peripheral swelling [Unknown]
  - Face injury [Unknown]
  - Mobility decreased [Unknown]
  - Lip swelling [Unknown]
  - Suture insertion [Unknown]
  - Arthritis [Unknown]
  - Face oedema [Unknown]
  - Asthenia [Unknown]
  - Tremor [Unknown]
  - Fall [Unknown]
  - Contusion [Unknown]
  - Facial pain [Unknown]

NARRATIVE: CASE EVENT DATE: 201109
